FAERS Safety Report 5415110-X (Version None)
Quarter: 2007Q3

REPORT INFORMATION
  Report Type: 
  Country: None (occurrence: None)
  Receive Date: 20070815
  Receipt Date: 20070608
  Transmission Date: 20080115
  Serious: No
  Sender: FDA-Public Use
  Company Number: A0655076A

PATIENT
  Age: 60 Year
  Sex: Male

DRUGS (4)
  1. COREG CR [Suspect]
     Indication: HYPERTENSION
     Dosage: 1CAP PER DAY
     Route: 048
     Dates: start: 20070603
  2. COUMADIN [Concomitant]
  3. LEXAPRO [Concomitant]
  4. VYTORIN [Concomitant]

REACTIONS (1)
  - POLLAKIURIA [None]
